FAERS Safety Report 12841501 (Version 1)
Quarter: 2016Q4

REPORT INFORMATION
  Report Type: Not Available
  Country: BR (occurrence: BR)
  Receive Date: 20161012
  Receipt Date: 20161012
  Transmission Date: 20170207
  Serious: Yes (Disabling, Other)
  Sender: FDA-Public Use
  Company Number: BR-AKORN-41088

PATIENT
  Age: 73 Year
  Sex: Female
  Weight: 72 kg

DRUGS (1)
  1. COSOPT [Suspect]
     Active Substance: DORZOLAMIDE HYDROCHLORIDE\TIMOLOL MALEATE

REACTIONS (5)
  - Eye irritation [Not Recovered/Not Resolved]
  - Cataract [Unknown]
  - Retinal detachment [Unknown]
  - Visual impairment [Unknown]
  - Ocular hyperaemia [Not Recovered/Not Resolved]
